FAERS Safety Report 12108356 (Version 1)
Quarter: 2016Q1

REPORT INFORMATION
  Report Type: Spontaneous
  Country: KR (occurrence: KR)
  Receive Date: 20160224
  Receipt Date: 20160224
  Transmission Date: 20160526
  Serious: Yes (Hospitalization)
  Sender: FDA-Public Use
  Company Number: KR-AMGEN-KORCT2016021967

PATIENT
  Age: 47 Year
  Sex: Female
  Weight: 48.6 kg

DRUGS (22)
  1. FILGRASTIM [Concomitant]
     Active Substance: FILGRASTIM
     Dosage: 150 MCG, UNK
     Route: 058
     Dates: start: 20151211, end: 20151212
  2. DOCETAXEL. [Concomitant]
     Active Substance: DOCETAXEL
     Dosage: 107 MG, UNK
     Route: 042
     Dates: start: 20151226, end: 20151226
  3. DOXORUBICIN [Concomitant]
     Active Substance: DOXORUBICIN
     Dosage: 71.5 MG, UNK
     Route: 042
     Dates: start: 20151226, end: 20151226
  4. DOXORUBICIN [Concomitant]
     Active Substance: DOXORUBICIN
     Dosage: 71.5 MG, UNK
     Route: 042
     Dates: start: 20160206, end: 20160206
  5. CEFOBACTAM [Concomitant]
     Active Substance: CEFOPERAZONE SODIUM\SULBACTAM SODIUM
     Dosage: 2 G, UNK
     Route: 042
     Dates: start: 20151211, end: 20151212
  6. CYCLOPHOSPHAMIDE. [Concomitant]
     Active Substance: CYCLOPHOSPHAMIDE
     Dosage: 715 MG, UNK
     Route: 042
     Dates: start: 20160206, end: 20160206
  7. DOCETAXEL. [Concomitant]
     Active Substance: DOCETAXEL
     Dosage: 107 MG, UNK
     Route: 042
     Dates: start: 20151205, end: 20151205
  8. DOCETAXEL. [Concomitant]
     Active Substance: DOCETAXEL
     Dosage: 107 MG, UNK
     Route: 042
     Dates: start: 20160116, end: 20160116
  9. DOXORUBICIN [Concomitant]
     Active Substance: DOXORUBICIN
     Dosage: 71.5 MG, UNK
     Route: 042
     Dates: start: 20160116, end: 20160116
  10. TOBRAMYCIN. [Concomitant]
     Active Substance: TOBRAMYCIN
     Dosage: 200 MG, UNK
     Route: 042
     Dates: start: 20151211, end: 20151212
  11. G-LASTA [Suspect]
     Active Substance: PEGFILGRASTIM
     Dosage: 6 MG, 1X/3WEEKS
     Route: 058
     Dates: start: 20151227, end: 20151227
  12. G-LASTA [Suspect]
     Active Substance: PEGFILGRASTIM
     Dosage: 6 MG, 1X/3WEEKS
     Route: 058
     Dates: start: 20160117, end: 20160117
  13. DOXORUBICIN [Concomitant]
     Active Substance: DOXORUBICIN
     Dosage: 71.5 MG, UNK
     Route: 042
     Dates: start: 20151205, end: 20151205
  14. CYCLOPHOSPHAMIDE. [Concomitant]
     Active Substance: CYCLOPHOSPHAMIDE
     Dosage: 715 MG, UNK
     Route: 042
     Dates: start: 20160116, end: 20160116
  15. TOBRAMYCIN. [Concomitant]
     Active Substance: TOBRAMYCIN
     Dosage: 200 MG, UNK
     Route: 042
     Dates: start: 20160122, end: 20160123
  16. CEFOBACTAM [Concomitant]
     Active Substance: CEFOPERAZONE SODIUM\SULBACTAM SODIUM
     Dosage: 2 G, UNK
     Route: 042
     Dates: start: 20160122, end: 20160123
  17. G-LASTA [Suspect]
     Active Substance: PEGFILGRASTIM
     Indication: FEBRILE NEUTROPENIA
     Dosage: 6 MG, 1X/3WEEKS
     Route: 058
     Dates: start: 20151206, end: 20151206
  18. G-LASTA [Suspect]
     Active Substance: PEGFILGRASTIM
     Dosage: 6 MG, 1X/3WEEKS
     Route: 058
     Dates: start: 20160207, end: 20160207
  19. FILGRASTIM [Concomitant]
     Active Substance: FILGRASTIM
     Dosage: 150 MCG, UNK
     Route: 058
     Dates: start: 20160122, end: 20160123
  20. DOCETAXEL. [Concomitant]
     Active Substance: DOCETAXEL
     Dosage: 107 MG, UNK
     Route: 042
     Dates: start: 20160206, end: 20160206
  21. CYCLOPHOSPHAMIDE. [Concomitant]
     Active Substance: CYCLOPHOSPHAMIDE
     Dosage: 715 MG, UNK
     Route: 042
     Dates: start: 20151205, end: 20151205
  22. CYCLOPHOSPHAMIDE. [Concomitant]
     Active Substance: CYCLOPHOSPHAMIDE
     Dosage: 715 MG, UNK
     Route: 042
     Dates: start: 20151226, end: 20151226

REACTIONS (1)
  - Febrile neutropenia [Recovered/Resolved]

NARRATIVE: CASE EVENT DATE: 20160212
